FAERS Safety Report 9571239 (Version 3)
Quarter: 2014Q2

REPORT INFORMATION
  Report Type: Report from Study
  Country: US (occurrence: US)
  Receive Date: 20131001
  Receipt Date: 20140402
  Transmission Date: 20141212
  Serious: Yes (Hospitalization)
  Sender: FDA-Public Use
  Company Number: US-ALEXION-A201302414

PATIENT
  Sex: 0

DRUGS (19)
  1. ECULIZUMAB [Suspect]
     Indication: HAEMOLYTIC URAEMIC SYNDROME
     Dosage: 900 MG, SINGLE
     Route: 042
     Dates: start: 20130821, end: 20130821
  2. ECULIZUMAB [Suspect]
     Dosage: 1200 MG, SINGLE
     Route: 042
     Dates: start: 20130904, end: 20130904
  3. COREG [Concomitant]
     Indication: PRODUCT USED FOR UNKNOWN INDICATION
     Dosage: 25 MG, Q12H
     Route: 048
  4. CELEXA [Concomitant]
     Dosage: 20 MG, QD
     Route: 048
  5. CARDIZEM [Concomitant]
     Dosage: 360 MG, QD
     Route: 048
  6. LOSARTAN [Concomitant]
     Dosage: 50 MG, BID
     Route: 048
  7. PANTOPRAZOLE [Concomitant]
     Dosage: 40 MG, QD
     Route: 048
  8. PREDNISONE [Concomitant]
     Dosage: 5 MG, QD
     Route: 048
  9. AMBIEN [Concomitant]
     Dosage: 10 MG, QHS
     Route: 048
  10. CLONIDINE [Concomitant]
     Dosage: 0.3 MG, TID
     Route: 048
  11. METOCLOPRAMIDE [Concomitant]
     Dosage: 10 MG, TID
     Route: 048
  12. VALGANCICLOVIR [Concomitant]
     Dosage: 450 MG, QOD
  13. CARVEDILOL [Concomitant]
     Dosage: 25 MG, BID
     Route: 048
  14. AZATHIOPRINE [Concomitant]
     Dosage: 50 MG, QD
     Route: 048
  15. PROGRAF [Concomitant]
     Dosage: 1 MG, BID
     Route: 048
  16. PROGRAF [Concomitant]
     Dosage: 4 MG Q12H, UNK
     Route: 048
  17. SENSIPAR [Concomitant]
     Dosage: 60 MG, QOD
     Route: 048
  18. NEXIUM [Concomitant]
     Dosage: 40 MG, QD
     Route: 048
  19. HYDRALAZINE [Concomitant]
     Dosage: 50 MG, BID
     Route: 048

REACTIONS (3)
  - Renal impairment [Recovered/Resolved]
  - Pneumonia [Recovered/Resolved]
  - Abdominal pain [Recovered/Resolved]
